FAERS Safety Report 19902065 (Version 1)
Quarter: 2021Q3

REPORT INFORMATION
  Report Type: Spontaneous
  Country: CA (occurrence: CA)
  Receive Date: 20210930
  Receipt Date: 20210930
  Transmission Date: 20211014
  Serious: Yes (Life-Threatening, Hospitalization)
  Sender: FDA-Public Use
  Company Number: CA-TEVA-2021-CA-1958469

PATIENT
  Age: 10 Year
  Sex: Male
  Weight: 43 kg

DRUGS (5)
  1. 6?MERCAPTOPURINE [Suspect]
     Active Substance: MERCAPTOPURINE
     Route: 065
  2. METHOTREXATE. [Suspect]
     Active Substance: METHOTREXATE
     Route: 037
  3. CYTARABINE INJECTION [Suspect]
     Active Substance: CYTARABINE
     Route: 065
  4. PEG?L?ASPARAGINASE [Suspect]
     Active Substance: PEGASPARGASE
     Route: 042
  5. VINCRISTINE SULFATE. [Suspect]
     Active Substance: VINCRISTINE SULFATE
     Route: 065

REACTIONS (1)
  - Febrile neutropenia [Recovering/Resolving]
